FAERS Safety Report 14355372 (Version 1)
Quarter: 2018Q1

REPORT INFORMATION
  Report Type: Spontaneous
  Country: US (occurrence: US)
  Receive Date: 20180104
  Receipt Date: 20180104
  Transmission Date: 20180509
  Serious: No
  Sender: FDA-Public Use
  Company Number: None

PATIENT
  Age: 53 Year
  Sex: Female
  Weight: 72 kg

DRUGS (1)
  1. HYDROCODONE/ACETAMINOPHEN 10-325 T MFG AMNEAL - GENERIC FOR NORCO 10 [Suspect]
     Active Substance: ACETAMINOPHEN\HYDROCODONE
     Indication: PAIN IN EXTREMITY
     Dosage: ?          QUANTITY:90 TABLET(S);?
     Route: 048
     Dates: start: 20171227, end: 20180103

REACTIONS (3)
  - Product substitution issue [None]
  - Drug ineffective [None]
  - Abdominal discomfort [None]

NARRATIVE: CASE EVENT DATE: 20171227
